FAERS Safety Report 4644767-6 (Version None)
Quarter: 2005Q2

REPORT INFORMATION
  Report Type: 
  Country: None (occurrence: None)
  Receive Date: 20050426
  Receipt Date: 20050316
  Transmission Date: 20051028
  Serious: Yes (Other)
  Sender: FDA-Public Use
  Company Number: US-BRISTOL-MYERS SQUIBB COMPANY-12900726

PATIENT
  Age: 59 Year
  Sex: Female

DRUGS (11)
  1. CARBOPLATIN [Suspect]
     Indication: NON-SMALL CELL LUNG CANCER
     Route: 042
     Dates: start: 20050308, end: 20050308
  2. TAXOTERE [Suspect]
     Indication: NON-SMALL CELL LUNG CANCER
     Route: 042
     Dates: start: 20050308, end: 20050308
  3. LISINOPRIL [Concomitant]
     Route: 048
  4. NORVASC [Concomitant]
  5. BUMEX [Concomitant]
     Route: 048
  6. K-DUR 10 [Concomitant]
     Route: 048
  7. PREMPRO [Concomitant]
  8. ROBITUSSIN [Concomitant]
  9. XANAX [Concomitant]
  10. CRESTOR [Concomitant]
  11. ZETIA [Concomitant]

REACTIONS (4)
  - BLOOD CREATININE INCREASED [None]
  - BLOOD UREA INCREASED [None]
  - COLITIS [None]
  - DEHYDRATION [None]
